FAERS Safety Report 6058055-7 (Version None)
Quarter: 2009Q1

REPORT INFORMATION
  Report Type: 
  Country: None (occurrence: None)
  Receive Date: 20090127
  Receipt Date: 20090112
  Transmission Date: 20090719
  Serious: Yes (Hospitalization)
  Sender: FDA-Public Use
  Company Number: 231317K08USA

PATIENT
  Age: 63 Year
  Sex: Male

DRUGS (13)
  1. REBIF [Suspect]
     Indication: MULTIPLE SCLEROSIS
     Dosage: 44 MCG, 3 IN 1 WEEKS, SUBCUTANEOUS
     Route: 058
     Dates: start: 20060101
  2. MORPHINE (MORPHINE/00036301/1) [Suspect]
     Indication: PAIN
     Dosage: NOT REPORTED, NOT REPORTED, INTRAVENOUS (NOT OTHERWISE SPECIFIED)
     Route: 042
  3. BACLOFEN [Suspect]
     Indication: PAIN
     Dosage: NOT REPORTED, NOT REPORTED, INTRAVENOUS (NOT OTHERWISE SPECIFIED)
     Route: 042
  4. HYDROCODONE (HYDROCODONE) [Suspect]
     Indication: PAIN
     Dosage: NOT REPORTED, NOT REPORTED, NOT REPORTED
     Dates: end: 20070101
  5. FENTANYL [Suspect]
     Indication: PAIN
     Dosage: 125 MG, 1 IN 1 DAYS, NOT REPORTED
     Dates: start: 20070101
  6. PROZAC [Concomitant]
  7. CYMBALTA [Concomitant]
  8. LOVASTATIN [Concomitant]
  9. FUROSEMIDE (FUROSEMIDE/00032601/) [Concomitant]
  10. CLONIDINE [Concomitant]
  11. TEMAZEPAM [Concomitant]
  12. SULINDAC [Concomitant]
  13. METOPROLOL           (METOPROLOL /00376901/) [Concomitant]

REACTIONS (5)
  - CONDITION AGGRAVATED [None]
  - CONSTIPATION [None]
  - HYPOPHAGIA [None]
  - MULTIPLE SCLEROSIS [None]
  - PAIN IN EXTREMITY [None]
